FAERS Safety Report 10365971 (Version 1)
Quarter: 2014Q3

REPORT INFORMATION
  Report Type: Spontaneous
  Country: US (occurrence: None)
  Receive Date: 20140805
  Receipt Date: 20140805
  Transmission Date: 20150326
  Serious: Yes (Other)
  Sender: FDA-Public Use
  Company Number: None

PATIENT
  Age: 67 Year
  Sex: Female
  Weight: 77.11 kg

DRUGS (12)
  1. WARFARIN [Concomitant]
     Active Substance: WARFARIN
  2. ELAVIL [Concomitant]
     Active Substance: AMITRIPTYLINE HYDROCHLORIDE
  3. LORTAB [Concomitant]
     Active Substance: ACETAMINOPHEN\HYDROCODONE BITARTRATE
  4. FORTEO [Suspect]
     Active Substance: TERIPARATIDE
     Indication: MULTIPLE FRACTURES
     Dosage: 20 MCG?PRE-FILLED MULTI-DOSE SYRINGE?20 MCG SQ EVERY DAY?INJECTION
     Route: 058
     Dates: start: 201202, end: 20120601
  5. SYNTHROID [Concomitant]
     Active Substance: LEVOTHYROXINE SODIUM
  6. DIVIGEL [Concomitant]
     Active Substance: ESTRADIOL
  7. CENTRUM SILVER VITAMIN [Concomitant]
  8. COREG CR [Concomitant]
     Active Substance: CARVEDILOL PHOSPHATE
  9. CYTOMEL [Concomitant]
     Active Substance: LIOTHYRONINE SODIUM
  10. RECLAST [Concomitant]
     Active Substance: ZOLEDRONIC ACID
  11. FORTEO [Suspect]
     Active Substance: TERIPARATIDE
     Indication: PELVIC FRACTURE
     Dosage: 20 MCG?PRE-FILLED MULTI-DOSE SYRINGE?20 MCG SQ EVERY DAY?INJECTION
     Route: 058
     Dates: start: 201202, end: 20120601
  12. FLUTICASONE NASAL SPRAY [Concomitant]
     Active Substance: FLUTICASONE\FLUTICASONE PROPIONATE

REACTIONS (1)
  - Dyspnoea exertional [None]

NARRATIVE: CASE EVENT DATE: 201203
